FAERS Safety Report 10331166 (Version 2)
Quarter: 2014Q3

REPORT INFORMATION
  Report Type: Report from Study
  Country: US (occurrence: US)
  Receive Date: 20140722
  Receipt Date: 20140915
  Transmission Date: 20150326
  Serious: Yes (Other)
  Sender: FDA-Public Use
  Company Number: US-ROCHE-1436959

PATIENT
  Age: 15 Year
  Sex: Male
  Weight: 56.25 kg

DRUGS (2)
  1. FEMARA [Concomitant]
     Active Substance: LETROZOLE
     Route: 065
  2. NUTROPIN AQ [Suspect]
     Active Substance: SOMATROPIN
     Indication: BODY HEIGHT BELOW NORMAL
     Route: 058

REACTIONS (4)
  - Goitre [Unknown]
  - Headache [Unknown]
  - Facial bones fracture [Unknown]
  - Arthralgia [Unknown]

NARRATIVE: CASE EVENT DATE: 201310
